FAERS Safety Report 17683028 (Version 1)
Quarter: 2020Q2

REPORT INFORMATION
  Report Type: Report from Study
  Country: DE (occurrence: DE)
  Receive Date: 20200420
  Receipt Date: 20200420
  Transmission Date: 20200714
  Serious: Yes (Hospitalization)
  Sender: FDA-Public Use
  Company Number: DE-ROCHE-2581647

PATIENT
  Age: 51 Year
  Sex: Male
  Weight: 62 kg

DRUGS (5)
  1. OXALIPLATIN. [Suspect]
     Active Substance: OXALIPLATIN
     Indication: GASTRIC CANCER
     Dosage: LAST DOSE OF OXALIPLATIN 147 MG : 07/APR/2020
     Route: 065
  2. LEUCOVORIN [FOLINIC ACID] [Suspect]
     Active Substance: LEUCOVORIN
     Indication: GASTRIC CANCER
     Dosage: LAST DOSE OF FOLINIC ACID 346 MG: 21/JAN/2020
     Route: 065
  3. DOCETAXEL. [Suspect]
     Active Substance: DOCETAXEL
     Indication: GASTRIC CANCER
     Dosage: LAST DOSE OF DOCETAXEL 86.5 MG: 07/APR/2020
     Route: 065
  4. ATEZOLIZUMAB. [Suspect]
     Active Substance: ATEZOLIZUMAB
     Indication: GASTRIC CANCER
     Dosage: LAST DOSE OF ATEZOLIZUMAB 346 MG: 07/APR/2020
     Route: 042
  5. 5 FU [Suspect]
     Active Substance: FLUOROURACIL
     Indication: GASTRIC CANCER
     Dosage: LAST DOSE OF FLUOROURACIL 4524 MG: 02/JAN/2020
     Route: 065

REACTIONS (1)
  - Hypersensitivity [Recovered/Resolved]

NARRATIVE: CASE EVENT DATE: 20200407
